FAERS Safety Report 15237373 (Version 1)
Quarter: 2018Q3

REPORT INFORMATION
  Report Type: Spontaneous
  Country: US (occurrence: US)
  Receive Date: 20180803
  Receipt Date: 20180803
  Transmission Date: 20181010
  Serious: No
  Sender: FDA-Public Use
  Company Number: US-MYLANLABS-2018M1054369

PATIENT
  Age: 61 Year
  Sex: Female

DRUGS (2)
  1. LIDOCAINE. [Suspect]
     Active Substance: LIDOCAINE
     Indication: NERVE INJURY
     Dosage: UNK
     Route: 003
     Dates: start: 20180705
  2. LIDOCAINE. [Suspect]
     Active Substance: LIDOCAINE
     Indication: PAIN

REACTIONS (5)
  - Wrong technique in product usage process [Not Recovered/Not Resolved]
  - Off label use [Unknown]
  - Product quality issue [Not Recovered/Not Resolved]
  - Product adhesion issue [Not Recovered/Not Resolved]
  - No adverse event [Unknown]

NARRATIVE: CASE EVENT DATE: 20180705
